FAERS Safety Report 14293270 (Version 4)
Quarter: 2018Q3

REPORT INFORMATION
  Report Type: Report from Study
  Country: None (occurrence: FR)
  Receive Date: 20171215
  Receipt Date: 20180926
  Transmission Date: 20181010
  Serious: Yes (Hospitalization)
  Sender: FDA-Public Use
  Company Number: FR-ABBVIE-17P-056-2167910-00

PATIENT
  Age: 81 Year
  Sex: Male
  Weight: 80 kg

DRUGS (21)
  1. CYAMEMAZINE(CYAMEMAZINE) [Concomitant]
     Indication: INSOMNIA
     Route: 048
     Dates: start: 20170920
  2. CILOXADEX (CIPROFLOXACIN HYDROCHLORIDE, DEXAMETHASONE) [Concomitant]
     Indication: OTORRHOEA
     Route: 001
     Dates: start: 20180515, end: 20180529
  3. AZOPT (BRINZOLAMIDE) [Concomitant]
     Indication: GLAUCOMA
     Route: 047
     Dates: start: 201803, end: 201806
  4. AUGMENTIN (AMOXICILLIN, CLAVULANATE POTASSIUM) [Concomitant]
     Dosage: 1G/125 MG
     Route: 048
     Dates: start: 20180220, end: 20180227
  5. MONOPROST (LATANOPROST) [Concomitant]
     Indication: GLAUCOMA
     Dates: start: 201806
  6. TEMERIT (NEBIVOLOL HYDROCHLORIDE) [Concomitant]
     Indication: HYPERTENSION
  7. KARDEGIC (ASPIRIN DL?LYSINE) [Concomitant]
     Indication: CARDIAC FAILURE
     Route: 048
     Dates: start: 20180612
  8. ALDACTONE (FRANCE) (SPIRONOLACTONE) [Concomitant]
     Indication: CARDIAC FAILURE
     Route: 048
  9. AUGMENTIN (AMOXICILLIN, CLAVULANATE POTASSIUM) [Concomitant]
     Indication: LUNG DISORDER
     Route: 042
     Dates: start: 20180212, end: 20180219
  10. FUROSEMIDE (FUROSEMIDE) [Concomitant]
     Active Substance: FUROSEMIDE
     Indication: CARDIAC FAILURE
     Route: 048
  11. FUROSEMIDE (FUROSEMIDE) [Concomitant]
     Active Substance: FUROSEMIDE
     Indication: HYPERTENSION
  12. ALDACTONE (FRANCE) (SPIRONOLACTONE) [Concomitant]
     Indication: HYPERTENSION
  13. OXAZEPAM (OXAZEPAM) [Concomitant]
     Active Substance: OXAZEPAM
     Indication: INSOMNIA
     Route: 048
     Dates: start: 20170920
  14. ROVAMYCINE(SPIRAMYCIN) [Concomitant]
     Indication: LUNG DISORDER
     Route: 042
     Dates: start: 20180212, end: 20180219
  15. AUGMENTIN (AMOXICILLIN, CLAVULANATE POTASSIUM) [Concomitant]
     Indication: NASAL POLYPS
     Route: 048
     Dates: start: 201708, end: 201708
  16. GANFORT (BIMATOPROST, TIMOLOL MALEATE) [Concomitant]
     Indication: GLAUCOMA
     Route: 047
     Dates: start: 201803, end: 201806
  17. VEINAMITOL (TROXERUTIN) [Concomitant]
     Active Substance: TROXERUTIN
     Indication: GLAUCOMA
     Dates: start: 201803, end: 201806
  18. VENETOCLAX. [Suspect]
     Active Substance: VENETOCLAX
     Indication: CHRONIC LYMPHOCYTIC LEUKAEMIA
     Dosage: MOST RECENT DOSE PRIOR TO SAE :27MAR17
     Route: 048
     Dates: start: 20160518
  19. GA101 [Suspect]
     Active Substance: OBINUTUZUMAB
     Indication: CHRONIC LYMPHOCYTIC LEUKAEMIA
     Dosage: MOST RECENT DOSE ON 14 SEP 2016 AT 1230
     Route: 042
     Dates: start: 20160425
  20. TEMERIT (NEBIVOLOL HYDROCHLORIDE) [Concomitant]
     Indication: CARDIAC FAILURE
     Route: 048
  21. ROVAMYCINE(SPIRAMYCIN) [Concomitant]
     Route: 048
     Dates: start: 20180220, end: 20180227

REACTIONS (1)
  - Sinusitis aspergillus [Not Recovered/Not Resolved]

NARRATIVE: CASE EVENT DATE: 20171103
